FAERS Safety Report 19911552 (Version 1)
Quarter: 2021Q4

REPORT INFORMATION
  Report Type: Spontaneous
  Country: US (occurrence: US)
  Receive Date: 20211004
  Receipt Date: 20211004
  Transmission Date: 20220303
  Serious: Yes (Other)
  Sender: FDA-Public Use
  Company Number: US-APOTEX-2021AP043412

PATIENT
  Age: 44 Year
  Sex: Male

DRUGS (2)
  1. BIVALIRUDIN [Suspect]
     Active Substance: BIVALIRUDIN
     Indication: Anticoagulant therapy
     Dosage: UNK
     Route: 065
  2. HEPARIN [Suspect]
     Active Substance: HEPARIN SODIUM
     Indication: Nephrostomy
     Dosage: UNK
     Route: 065

REACTIONS (2)
  - Thrombocytopenia [Unknown]
  - Anticoagulation drug level below therapeutic [Unknown]
